FAERS Safety Report 7157943-8 (Version None)
Quarter: 2010Q4

REPORT INFORMATION
  Report Type: 
  Country: None (occurrence: None)
  Receive Date: 20101214
  Receipt Date: 20101208
  Transmission Date: 20110411
  Serious: Yes (Other)
  Sender: FDA-Public Use
  Company Number: US-JNJFOC-20101204042

PATIENT
  Age: 52 Year
  Sex: Female
  Weight: 49.9 kg

DRUGS (7)
  1. LEVAQUIN [Suspect]
     Indication: PNEUMONIA
     Route: 042
  2. PROPRANOLOL [Concomitant]
     Indication: MIGRAINE
     Route: 065
  3. PROPRANOLOL [Concomitant]
     Indication: TREMOR
     Route: 065
  4. PRIMIDONE [Concomitant]
     Indication: TREMOR
     Route: 065
  5. CLONOPIN [Concomitant]
     Indication: TREMOR
     Route: 065
  6. TRAMEDO [Concomitant]
     Indication: CONVULSION
     Route: 065
  7. UNSPECIFIED NEBULIZER [Concomitant]
     Indication: CHRONIC OBSTRUCTIVE PULMONARY DISEASE
     Route: 065

REACTIONS (6)
  - MYALGIA [None]
  - PAIN [None]
  - PAIN IN EXTREMITY [None]
  - PHARYNGEAL OEDEMA [None]
  - RESPIRATORY DISTRESS [None]
  - SWELLING FACE [None]
